FAERS Safety Report 22829197 (Version 8)
Quarter: 2024Q1

REPORT INFORMATION
  Report Type: Spontaneous
  Country: US (occurrence: US)
  Receive Date: 20230816
  Receipt Date: 20240201
  Transmission Date: 20240409
  Serious: No
  Sender: FDA-Public Use
  Company Number: US-Calliditas-2023CAL00999

PATIENT
  Age: 51 Year
  Sex: Female
  Weight: 79.5 kg

DRUGS (1)
  1. TARPEYO [Suspect]
     Active Substance: BUDESONIDE
     Indication: Haematuria
     Dosage: 16MG (4MG CAPSULES) ONCE DAILY
     Route: 048
     Dates: start: 20230805

REACTIONS (17)
  - Gastrooesophageal reflux disease [Unknown]
  - Acne [Recovered/Resolved]
  - Weight increased [Not Recovered/Not Resolved]
  - Hunger [Not Recovered/Not Resolved]
  - Increased appetite [Not Recovered/Not Resolved]
  - Insomnia [Not Recovered/Not Resolved]
  - Swelling face [Not Recovered/Not Resolved]
  - Prescribed underdose [Not Recovered/Not Resolved]
  - Hypertension [Not Recovered/Not Resolved]
  - Palpitations [Not Recovered/Not Resolved]
  - Glycosylated haemoglobin increased [Not Recovered/Not Resolved]
  - Product dose omission issue [Recovered/Resolved]
  - Irritability [Recovered/Resolved]
  - Fungal infection [Unknown]
  - Abdominal pain upper [Unknown]
  - Dyspepsia [Unknown]
  - Alopecia [Unknown]

NARRATIVE: CASE EVENT DATE: 20230808
